FAERS Safety Report 9247652 (Version 1)
Quarter: 2013Q2

REPORT INFORMATION
  Report Type: Spontaneous
  Country: US (occurrence: None)
  Receive Date: 20130419
  Receipt Date: 20130419
  Transmission Date: 20140414
  Serious: Yes (Death)
  Sender: FDA-Public Use
  Company Number: None

PATIENT
  Age: 44 Year
  Sex: Female

DRUGS (1)
  1. LEVOXYL [Suspect]
     Indication: HYPOTHYROIDISM
     Dates: start: 20120807

REACTIONS (4)
  - Blood thyroid stimulating hormone increased [None]
  - Hypothyroidism [None]
  - Disease recurrence [None]
  - Product substitution issue [None]
